FAERS Safety Report 20145191 (Version 1)
Quarter: 2021Q4

REPORT INFORMATION
  Report Type: Spontaneous
  Country: JP (occurrence: JP)
  Receive Date: 20211203
  Receipt Date: 20211203
  Transmission Date: 20220303
  Serious: Yes (Death)
  Sender: FDA-Public Use
  Company Number: JP-PFIZER INC-202101663005

PATIENT
  Age: 80 Year
  Sex: Female

DRUGS (4)
  1. VYNDAQEL [Suspect]
     Active Substance: TAFAMIDIS MEGLUMINE
     Dosage: 80 MG, DAILY
     Route: 048
     Dates: start: 20211026
  2. PERINDOPRIL ERBUMINE [Concomitant]
     Active Substance: PERINDOPRIL ERBUMINE
     Dosage: 2 MG, DAILY
  3. AZOSEMIDE [Concomitant]
     Active Substance: AZOSEMIDE
     Dosage: 1.5 TABLET, DAILY
  4. ISOPROTERENOL HYDROCHLORIDE [Concomitant]
     Active Substance: ISOPROTERENOL HYDROCHLORIDE
     Dosage: 0.625 UNIT UNKNOWN, DAILY

REACTIONS (2)
  - Conduction disorder [Fatal]
  - Arrhythmia [Fatal]
